FAERS Safety Report 11043639 (Version 2)
Quarter: 2015Q2

REPORT INFORMATION
  Report Type: Spontaneous
  Country: US (occurrence: US)
  Receive Date: 20150417
  Receipt Date: 20150508
  Transmission Date: 20150821
  Serious: No
  Sender: FDA-Public Use
  Company Number: US-TEVA-555212USA

PATIENT
  Age: 18 Year
  Sex: Male

DRUGS (1)
  1. CLARAVIS [Suspect]
     Active Substance: ISOTRETINOIN
     Dates: start: 20150125, end: 20150312

REACTIONS (2)
  - Aspartate aminotransferase abnormal [Recovered/Resolved with Sequelae]
  - Influenza [Unknown]

NARRATIVE: CASE EVENT DATE: 20150312
